FAERS Safety Report 5584095-8 (Version None)
Quarter: 2008Q1

REPORT INFORMATION
  Report Type: 
  Country: None (occurrence: None)
  Receive Date: 20080104
  Receipt Date: 20080104
  Transmission Date: 20080703
  Serious: Yes (Hospitalization)
  Sender: FDA-Public Use
  Company Number: None

PATIENT
  Age: 72 Year
  Sex: Male

DRUGS (1)
  1. LAPATINIB [Suspect]
     Indication: PANCREATIC CARCINOMA METASTATIC
     Dosage: 1500MG PO QD
     Route: 048
     Dates: start: 20071207

REACTIONS (1)
  - PAIN [None]
